FAERS Safety Report 17968735 (Version 1)
Quarter: 2020Q3

REPORT INFORMATION
  Report Type: Spontaneous
  Country: GB (occurrence: GB)
  Receive Date: 20200701
  Receipt Date: 20200701
  Transmission Date: 20201103
  Serious: Yes (Other)
  Sender: FDA-Public Use
  Company Number: NVSC2020GB181261

PATIENT
  Age: 77 Year
  Sex: Male

DRUGS (11)
  1. ACCRETE D3 [Concomitant]
     Active Substance: CALCIUM CARBONATE\CHOLECALCIFEROL
     Indication: PRODUCT USED FOR UNKNOWN INDICATION
     Dosage: 1 DF
     Route: 048
  2. LEVETIRACETAM. [Suspect]
     Active Substance: LEVETIRACETAM
     Indication: SEIZURE
     Dosage: 750 MG
     Route: 041
     Dates: start: 20200429, end: 20200430
  3. BISOPROLOL [Concomitant]
     Active Substance: BISOPROLOL
     Indication: PRODUCT USED FOR UNKNOWN INDICATION
     Dosage: 2.5 MG, QD
     Route: 048
  4. GENTAMICIN. [Concomitant]
     Active Substance: GENTAMICIN
     Indication: PRODUCT USED FOR UNKNOWN INDICATION
     Dosage: UNK
     Route: 042
     Dates: start: 20200429, end: 20200501
  5. METFORMIN [Concomitant]
     Active Substance: METFORMIN HYDROCHLORIDE
     Indication: DIABETES MELLITUS
     Dosage: 2 G, QD
     Route: 048
  6. FINASTERIDE. [Concomitant]
     Active Substance: FINASTERIDE
     Indication: PRODUCT USED FOR UNKNOWN INDICATION
     Dosage: 5 MG
     Route: 048
  7. ATORVASTATIN [Concomitant]
     Active Substance: ATORVASTATIN
     Indication: PRODUCT USED FOR UNKNOWN INDICATION
     Dosage: 40 MG, QD
     Route: 048
  8. PREGABALIN. [Concomitant]
     Active Substance: PREGABALIN
     Indication: PRODUCT USED FOR UNKNOWN INDICATION
     Dosage: 100 MG, QD
     Route: 048
  9. METRONIDAZOLE. [Concomitant]
     Active Substance: METRONIDAZOLE
     Indication: PNEUMONIA
     Dosage: 1500 MG, QD
     Route: 041
     Dates: start: 20200429, end: 20200501
  10. AMOXICILLIN. [Concomitant]
     Active Substance: AMOXICILLIN
     Indication: PNEUMONIA
     Dosage: 3 G, QD
     Route: 042
     Dates: start: 20200429, end: 20200501
  11. HUMULIN M3 [Concomitant]
     Active Substance: INSULIN HUMAN
     Indication: PRODUCT USED FOR UNKNOWN INDICATION
     Dosage: 100 U/ML
     Route: 065

REACTIONS (3)
  - Infusion site induration [Recovered/Resolved]
  - Extravasation [Recovered/Resolved]
  - Infusion site swelling [Recovered/Resolved]

NARRATIVE: CASE EVENT DATE: 20200429
